FAERS Safety Report 12906640 (Version 1)
Quarter: 2016Q4

REPORT INFORMATION
  Report Type: Spontaneous
  Country: US (occurrence: US)
  Receive Date: 20161103
  Receipt Date: 20161103
  Transmission Date: 20170207
  Serious: Yes (Other)
  Sender: FDA-Public Use
  Company Number: US-GLAXOSMITHKLINE-US2016160864

PATIENT
  Sex: Male

DRUGS (1)
  1. INCRUSE ELLIPTA [Suspect]
     Active Substance: UMECLIDINIUM BROMIDE
     Indication: CHRONIC OBSTRUCTIVE PULMONARY DISEASE
     Dosage: UNK
     Route: 055

REACTIONS (5)
  - Hallucination [Recovered/Resolved]
  - Aggression [Recovered/Resolved]
  - Mood altered [Recovered/Resolved]
  - Physical assault [Recovered/Resolved]
  - Anger [Unknown]

NARRATIVE: CASE EVENT DATE: 2016
